FAERS Safety Report 15993826 (Version 3)
Quarter: 2019Q2

REPORT INFORMATION
  Report Type: Spontaneous
  Country: HK (occurrence: HK)
  Receive Date: 20190222
  Receipt Date: 20190530
  Transmission Date: 20190711
  Serious: Yes (Hospitalization, Other)
  Sender: FDA-Public Use
  Company Number: HK-ACCORD-108925

PATIENT
  Age: 69 Year
  Sex: Male

DRUGS (13)
  1. PARACETAMOL [Concomitant]
     Active Substance: ACETAMINOPHEN
     Indication: MYALGIA
  2. SIMVASTATIN. [Suspect]
     Active Substance: SIMVASTATIN
     Indication: PRODUCT USED FOR UNKNOWN INDICATION
     Dosage: AT NIGHT TABLET
     Route: 048
     Dates: start: 20081003, end: 20180814
  3. STEVIA REBAUDIANA [Interacting]
     Active Substance: HERBALS\STEVIA REBAUDIUNA LEAF
     Indication: PHYTOTHERAPY
     Dosage: 4-5 PIECES/DAY?DOSAGE FORM:HERBAL PIECE
     Route: 048
     Dates: start: 201806, end: 20180814
  4. CALCIUM CARBONATE/CALCIUM LACTOGLUCONATE [Concomitant]
  5. METFORMIN [Concomitant]
     Active Substance: METFORMIN HYDROCHLORIDE
     Indication: TYPE 2 DIABETES MELLITUS
     Dosage: 250 MG TWICE DAILY
  6. TERAZOSIN [Concomitant]
     Active Substance: TERAZOSIN\TERAZOSIN HYDROCHLORIDE
     Dosage: AT NIGHT
  7. UBIDECARENONE [Concomitant]
     Active Substance: UBIDECARENONE
  8. ALUMINIUM HYDROXIDE/MAGNESIUM HYDROXIDE [Concomitant]
  9. LOSARTAN. [Concomitant]
     Active Substance: LOSARTAN
     Indication: HYPERTENSION
     Dosage: 100 MG DAILY
  10. LINAGLIPTIN [Interacting]
     Active Substance: LINAGLIPTIN
     Indication: PHYTOTHERAPY
     Route: 048
     Dates: start: 20170906
  11. LANTUS SOLOSTAR [Concomitant]
     Active Substance: INSULIN GLARGINE
     Indication: TYPE 2 DIABETES MELLITUS
     Dosage: 8 UNITS, AT NIGHT
  12. INSULIN GLARGINE [Concomitant]
     Active Substance: INSULIN GLARGINE
     Indication: TYPE 2 DIABETES MELLITUS
     Dosage: 8 UNITS NOCTE
  13. CALCIUM PANTOTHENATE/NICOTINAMIDE/PYRIDOXINE HYDROCHLORIDE/RIBOFLAVIN/THIAMINE HYDROCHLORIDE [Concomitant]

REACTIONS (4)
  - Herbal interaction [Unknown]
  - Drug interaction [Unknown]
  - Rhabdomyolysis [Recovering/Resolving]
  - Renal impairment [Unknown]

NARRATIVE: CASE EVENT DATE: 2018
